FAERS Safety Report 7375990-8 (Version None)
Quarter: 2011Q1

REPORT INFORMATION
  Report Type: 
  Country: None (occurrence: None)
  Receive Date: 20110325
  Receipt Date: 20110316
  Transmission Date: 20110831
  Serious: Yes (Other)
  Sender: FDA-Public Use
  Company Number: CA-JNJFOC-20110306454

PATIENT
  Sex: Female
  Weight: 72.58 kg

DRUGS (2)
  1. METHOTREXATE [Concomitant]
  2. STELARA [Suspect]
     Indication: PSORIASIS
     Route: 058

REACTIONS (2)
  - ONYCHOCLASIS [None]
  - PUSTULAR PSORIASIS [None]
